FAERS Safety Report 14786926 (Version 2)
Quarter: 2018Q2

REPORT INFORMATION
  Report Type: Report from Study
  Country: US (occurrence: US)
  Receive Date: 20180420
  Receipt Date: 20180530
  Transmission Date: 20180711
  Serious: Yes (Other)
  Sender: FDA-Public Use
  Company Number: PHEH2018US015392

PATIENT
  Sex: Male
  Weight: 75.74 kg

DRUGS (1)
  1. ENTRESTO [Suspect]
     Active Substance: SACUBITRIL\VALSARTAN
     Indication: CARDIAC FAILURE CHRONIC
     Dosage: 1 DF(SACUBITRIL 49 MG/ VALSARTAN 51 MG), UNK
     Route: 048
     Dates: start: 20170619

REACTIONS (2)
  - Chest pain [Unknown]
  - Dyspnoea [Unknown]
